FAERS Safety Report 8598683-8 (Version None)
Quarter: 2012Q3

REPORT INFORMATION
  Report Type: 
  Country: None (occurrence: None)
  Receive Date: 20120816
  Receipt Date: 19910503
  Transmission Date: 20120928
  Serious: Yes (Hospitalization)
  Sender: FDA-Public Use
  Company Number: US-ROCHE-1100605

PATIENT
  Age: 59 Year
  Sex: Female

DRUGS (9)
  1. MORPHINE SULFATE [Concomitant]
  2. ACTIVASE [Suspect]
     Indication: ACUTE MYOCARDIAL INFARCTION
  3. LIDOCAINE [Concomitant]
     Indication: VENTRICULAR ARRHYTHMIA
  4. PROCAN SR [Concomitant]
  5. HEPARIN [Concomitant]
  6. TENORMIN [Concomitant]
  7. DYAZIDE [Concomitant]
  8. NITROGLYCERIN [Concomitant]
  9. ASPIRIN [Concomitant]

REACTIONS (2)
  - LEUKOCYTOSIS [None]
  - RESPIRATORY TRACT INFECTION [None]
